FAERS Safety Report 21468398 (Version 1)
Quarter: 2022Q4

REPORT INFORMATION
  Report Type: Spontaneous
  Country: US (occurrence: None)
  Receive Date: 20221015
  Receipt Date: 20221015
  Transmission Date: 20230113
  Serious: Yes (Hospitalization)
  Sender: FDA-Public Use
  Company Number: None

PATIENT
  Age: 72 Year
  Sex: Male

DRUGS (4)
  1. FUROSEMIDE [Suspect]
     Active Substance: FUROSEMIDE
     Indication: Hypertension
     Dosage: FREQUENCY : TWICE A DAY;?
     Route: 048
     Dates: start: 20210701, end: 20220821
  2. FUROSEMIDE [Suspect]
     Active Substance: FUROSEMIDE
     Indication: Cardiac failure congestive
  3. METOPROLOL [Suspect]
     Active Substance: METOPROLOL
     Indication: Hypertension
     Dosage: FREQUENCY : DAILY;?
     Route: 048
     Dates: start: 20220418, end: 20220821
  4. METOPROLOL [Suspect]
     Active Substance: METOPROLOL
     Indication: Cardiac failure congestive

REACTIONS (7)
  - Dizziness [None]
  - Orthostatic hypotension [None]
  - Limb injury [None]
  - Joint injury [None]
  - Fall [None]
  - Foot fracture [None]
  - Hypotension [None]

NARRATIVE: CASE EVENT DATE: 20220819
